FAERS Safety Report 20331411 (Version 1)
Quarter: 2022Q1

REPORT INFORMATION
  Report Type: Spontaneous
  Country: US (occurrence: None)
  Receive Date: 20220112
  Receipt Date: 20220112
  Transmission Date: 20220424
  Serious: Yes (Other)
  Sender: FDA-Public Use
  Company Number: None

PATIENT
  Age: 35 Year
  Sex: Female
  Weight: 63.96 kg

DRUGS (4)
  1. BAMLANIVIMAB [Suspect]
     Active Substance: BAMLANIVIMAB
     Indication: COVID-19
     Dosage: OTHER FREQUENCY : 250ML/HR;?
     Route: 042
     Dates: start: 20220112, end: 20220112
  2. ETESEVIMAB [Suspect]
     Active Substance: ETESEVIMAB
     Indication: COVID-19
     Dosage: OTHER FREQUENCY : 250ML/HR;?
     Route: 042
     Dates: start: 20220112, end: 20220112
  3. BAMLANIVIMAB [Concomitant]
     Active Substance: BAMLANIVIMAB
     Dates: start: 20220112, end: 20220112
  4. ETESEVIMAB [Concomitant]
     Active Substance: ETESEVIMAB
     Dates: start: 20220112, end: 20220112

REACTIONS (5)
  - Flushing [None]
  - Chest discomfort [None]
  - Throat tightness [None]
  - Dizziness [None]
  - Feeling abnormal [None]

NARRATIVE: CASE EVENT DATE: 20220112
